FAERS Safety Report 10416889 (Version 1)
Quarter: 2014Q3

REPORT INFORMATION
  Report Type: Spontaneous
  Country: US (occurrence: None)
  Receive Date: 20140826
  Receipt Date: 20140826
  Transmission Date: 20150326
  Serious: Yes (Hospitalization)
  Sender: FDA-Public Use
  Company Number: US-001177

PATIENT
  Age: 51 Year
  Sex: Female

DRUGS (1)
  1. GATTEX [Suspect]
     Active Substance: TEDUGLUTIDE\WATER
     Indication: SHORT-BOWEL SYNDROME
     Dosage: (DF SUBCUTANEOUS)
     Route: 058
     Dates: start: 20140809

REACTIONS (18)
  - Fatigue [None]
  - Refusal of treatment by patient [None]
  - Feeling abnormal [None]
  - Depression [None]
  - Memory impairment [None]
  - Ammonia increased [None]
  - Dysarthria [None]
  - Drug dose omission [None]
  - Slow speech [None]
  - Dysstasia [None]
  - Nausea [None]
  - Dyspnoea [None]
  - Drug ineffective [None]
  - Peripheral swelling [None]
  - Social avoidant behaviour [None]
  - Confusional state [None]
  - Anxiety [None]
  - Activities of daily living impaired [None]

NARRATIVE: CASE EVENT DATE: 201408
